FAERS Safety Report 5041197-2 (Version None)
Quarter: 2006Q3

REPORT INFORMATION
  Report Type: 
  Country: None (occurrence: None)
  Receive Date: 20060703
  Receipt Date: 20060630
  Transmission Date: 20061208
  Serious: Yes (Other)
  Sender: FDA-Public Use
  Company Number: US-GLAXOSMITHKLINE-A0610900A

PATIENT
  Sex: Female

DRUGS (3)
  1. COREG [Suspect]
     Route: 048
  2. FUROSEMIDE [Concomitant]
  3. LISINOPRIL [Concomitant]

REACTIONS (2)
  - BLINDNESS [None]
  - BLINDNESS UNILATERAL [None]
